FAERS Safety Report 18377069 (Version 1)
Quarter: 2020Q4

REPORT INFORMATION
  Report Type: Report from Study
  Country: FR (occurrence: FR)
  Receive Date: 20201013
  Receipt Date: 20201013
  Transmission Date: 20210114
  Serious: Yes (Hospitalization)
  Sender: FDA-Public Use
  Company Number: FR-MYLANLABS-2020M1085774

PATIENT
  Age: 65 Year
  Sex: Female

DRUGS (4)
  1. CARBOPLATIN. [Suspect]
     Active Substance: CARBOPLATIN
     Indication: METASTASES TO PERITONEUM
     Dosage: VIA TOTALLY IMPLANTABLE CENTRAL VENOUS ACCESS DEVICE
     Route: 042
  2. TAXOL [Suspect]
     Active Substance: PACLITAXEL
     Indication: OVARIAN CANCER
  3. TAXOL [Suspect]
     Active Substance: PACLITAXEL
     Indication: METASTASES TO PERITONEUM
     Dosage: VIA TOTALLY IMPLANTABLE CENTRAL VENOUS ACCESS DEVICE
     Route: 042
  4. CARBOPLATIN. [Suspect]
     Active Substance: CARBOPLATIN
     Indication: OVARIAN CANCER

REACTIONS (5)
  - Oedema [Recovering/Resolving]
  - Burning sensation [Recovering/Resolving]
  - Administration site extravasation [Recovering/Resolving]
  - Infusion site reaction [Recovering/Resolving]
  - Pain [Recovering/Resolving]
